FAERS Safety Report 20430449 (Version 2)
Quarter: 2024Q3

REPORT INFORMATION
  Report Type: Report from Study
  Country: FR (occurrence: FR)
  Receive Date: 20220204
  Receipt Date: 20240823
  Transmission Date: 20241016
  Serious: Yes (Hospitalization)
  Sender: SERVIER
  Company Number: FR-SERVIER-S20008562

PATIENT

DRUGS (8)
  1. PEGASPARGASE [Suspect]
     Active Substance: PEGASPARGASE
     Indication: Acute lymphocytic leukaemia
     Dosage: 1950 IU, QD, D15
     Route: 042
     Dates: start: 20200819, end: 20200819
  2. CYCLOPHOSPHAMIDE [Suspect]
     Active Substance: CYCLOPHOSPHAMIDE
     Indication: Acute lymphocytic leukaemia
     Dosage: 1570 MG, D1
     Route: 042
     Dates: start: 20200728
  3. CYTARABINE [Suspect]
     Active Substance: CYTARABINE
     Indication: Acute lymphocytic leukaemia
     Dosage: 117.5 MG, D3-D6 AND D10-D13
     Route: 042
     Dates: start: 20200730, end: 20200802
  4. CYTARABINE [Suspect]
     Active Substance: CYTARABINE
     Dosage: 30 MG, D3
     Route: 037
     Dates: start: 20200730
  5. HYDROCORTISONE [Suspect]
     Active Substance: HYDROCORTISONE\HYDROCORTISONE ACETATE
     Indication: Acute lymphocytic leukaemia
     Dosage: 15 MG, D3
     Route: 037
     Dates: start: 20200730
  6. METHOTREXATE [Suspect]
     Active Substance: METHOTREXATE
     Indication: Acute lymphocytic leukaemia
     Dosage: 15 MG, D3
     Route: 037
     Dates: start: 20200730
  7. VINCRISTINE [Suspect]
     Active Substance: VINCRISTINE
     Indication: Acute lymphocytic leukaemia
     Dosage: 2 MG, D15
     Route: 042
     Dates: start: 20200819
  8. MERCAPTOPURINE [Suspect]
     Active Substance: MERCAPTOPURINE
     Indication: Acute lymphocytic leukaemia
     Dosage: 50 MG/M2, QD, D1-D14
     Route: 048
     Dates: start: 20200728, end: 20200810

REACTIONS (2)
  - Abdominal pain [Recovered/Resolved]
  - Sepsis [Recovered/Resolved]

NARRATIVE: CASE EVENT DATE: 20200811
